FAERS Safety Report 4583541-6 (Version None)
Quarter: 2005Q1

REPORT INFORMATION
  Report Type: 
  Country: None (occurrence: None)
  Receive Date: 20050211
  Receipt Date: 20050202
  Transmission Date: 20050727
  Serious: Yes (Hospitalization)
  Sender: FDA-Public Use
  Company Number: 2004-09-0368

PATIENT
  Age: 3 Year
  Sex: Male
  Weight: 13 kg

DRUGS (6)
  1. CELESTONE [Suspect]
     Indication: LARYNGITIS
     Dosage: 100-40 DROPS* ORAL
     Route: 048
     Dates: start: 20031130
  2. CELESTENE (BETAMETHASONE) ORAL SOLUTION [Suspect]
     Indication: LARYNGITIS
     Dosage: 40 DROPS TID ORAL
     Route: 048
     Dates: start: 20031130
  3. CELESTENE (BETAMETHASONE) ORAL SOLUTION [Suspect]
     Indication: LARYNGITIS
     Dosage: 100 DROPS ORAL
     Route: 048
     Dates: start: 20040908, end: 20040908
  4. CELESTENE (BETAMETHASONE) ORAL SOLUTION [Suspect]
     Indication: LARYNGITIS
     Dosage: 50 DROPS ORAL
     Route: 048
     Dates: start: 20040908, end: 20040908
  5. CELESTENE (BETAMETHASONE) ORAL SOLUTION [Suspect]
     Indication: LARYNGITIS
     Dosage: 50 DROPS ORAL
     Route: 048
     Dates: start: 20040909, end: 20040909
  6. ACETAMINOPHEN [Concomitant]

REACTIONS (12)
  - ABNORMAL CHEST SOUND [None]
  - ANOREXIA [None]
  - APATHY [None]
  - COUGH [None]
  - DRUG TOXICITY [None]
  - DYSKINESIA [None]
  - EXTRAPYRAMIDAL DISORDER [None]
  - HYPERSOMNIA [None]
  - HYPOGLYCAEMIA [None]
  - INSOMNIA [None]
  - LARYNGITIS [None]
  - LYMPHADENOPATHY [None]
